FAERS Safety Report 5627106-3 (Version None)
Quarter: 2008Q1

REPORT INFORMATION
  Report Type: 
  Country: None (occurrence: None)
  Receive Date: 20080129
  Receipt Date: 20070419
  Transmission Date: 20080703
  Serious: Yes (Other)
  Sender: FDA-Public Use
  Company Number: 8024984

PATIENT
  Age: 47 Year
  Sex: Male

DRUGS (4)
  1. KEPPRA [Suspect]
     Indication: EPILEPSY
     Dosage: 2000 MG
     Dates: start: 20030810
  2. ALPRAZOLAM [Concomitant]
  3. PHENYTOIN [Concomitant]
  4. LEXAPRO [Concomitant]

REACTIONS (2)
  - OVERDOSE [None]
  - THERAPEUTIC AGENT TOXICITY [None]
